FAERS Safety Report 18266559 (Version 1)
Quarter: 2020Q3

REPORT INFORMATION
  Report Type: Spontaneous
  Country: PR (occurrence: US)
  Receive Date: 20200915
  Receipt Date: 20200915
  Transmission Date: 20201103
  Serious: No
  Sender: FDA-Public Use
  Company Number: NVSC2020US251819

PATIENT

DRUGS (3)
  1. VOLTAREN EMULGEL [Suspect]
     Active Substance: DICLOFENAC DIETHYLAMINE
     Indication: ARTHRALGIA
     Dosage: UNK
     Route: 065
  2. VOLTAREN EMULGEL [Suspect]
     Active Substance: DICLOFENAC DIETHYLAMINE
     Indication: MUSCULOSKELETAL PAIN
  3. VOLTAREN EMULGEL [Suspect]
     Active Substance: DICLOFENAC DIETHYLAMINE
     Indication: PAIN IN EXTREMITY

REACTIONS (4)
  - Drug ineffective [Unknown]
  - Product use in unapproved indication [Unknown]
  - Product administered at inappropriate site [Unknown]
  - Drug ineffective for unapproved indication [Unknown]
